FAERS Safety Report 22032002 (Version 6)
Quarter: 2023Q4

REPORT INFORMATION
  Report Type: Spontaneous
  Country: US (occurrence: US)
  Receive Date: 20230224
  Receipt Date: 20231121
  Transmission Date: 20240110
  Serious: Yes (Other)
  Sender: FDA-Public Use
  Company Number: US-BRISTOL-MYERS SQUIBB COMPANY-2023-027549

PATIENT
  Age: 66 Year
  Sex: Female

DRUGS (2)
  1. SPRYCEL [Suspect]
     Active Substance: DASATINIB
     Indication: Chronic myeloid leukaemia
     Route: 048
     Dates: start: 202301
  2. SPRYCEL [Suspect]
     Active Substance: DASATINIB
     Route: 048
     Dates: start: 202302

REACTIONS (11)
  - Nausea [Recovered/Resolved]
  - Headache [Unknown]
  - Weight increased [Unknown]
  - Rash [Unknown]
  - Night sweats [Unknown]
  - Alopecia [Unknown]
  - Pruritus [Unknown]
  - Gastrooesophageal reflux disease [Unknown]
  - Pleural effusion [Unknown]
  - Pulmonary oedema [Unknown]
  - Cough [Unknown]
